FAERS Safety Report 13574510 (Version 2)
Quarter: 2017Q2

REPORT INFORMATION
  Report Type: Spontaneous
  Country: DE (occurrence: DE)
  Receive Date: 20170523
  Receipt Date: 20170616
  Transmission Date: 20170830
  Serious: Yes (Other)
  Sender: FDA-Public Use
  Company Number: DE-PFIZER INC-2017218936

PATIENT
  Age: 5 Decade
  Sex: Female

DRUGS (2)
  1. UNACID PD [Suspect]
     Active Substance: SULTAMICILLIN TOSYLATE
     Indication: BRONCHITIS
     Dosage: 2 DF, 2X/DAY
     Route: 048
  2. UNACID PD [Suspect]
     Active Substance: SULTAMICILLIN TOSYLATE
     Dosage: 1 DF, 2X/DAY
     Route: 048

REACTIONS (3)
  - Bronchitis [Unknown]
  - Rash generalised [Recovering/Resolving]
  - Pneumonia [Unknown]
